FAERS Safety Report 15803758 (Version 1)
Quarter: 2019Q1

REPORT INFORMATION
  Report Type: Spontaneous
  Country: TH (occurrence: TH)
  Receive Date: 20190109
  Receipt Date: 20190109
  Transmission Date: 20190417
  Serious: Yes (Other)
  Sender: FDA-Public Use
  Company Number: TH-INCYTE CORPORATION-2018IN013342

PATIENT

DRUGS (3)
  1. JAKAVI [Suspect]
     Active Substance: RUXOLITINIB
     Indication: POLYCYTHAEMIA VERA
     Dosage: 20 OT, (1X2) PC
     Route: 065
  2. JAKAVI [Suspect]
     Active Substance: RUXOLITINIB
     Dosage: 15 OT, (1X2) PC
     Route: 065
  3. JAKAVI [Suspect]
     Active Substance: RUXOLITINIB
     Dosage: 15 OT, (1X1) PC
     Route: 065

REACTIONS (10)
  - Platelet count decreased [Unknown]
  - Vision blurred [Unknown]
  - Basophil count increased [Unknown]
  - Neutrophil count increased [Unknown]
  - Haemoglobin decreased [Unknown]
  - Mean cell volume decreased [Unknown]
  - White blood cell count increased [Unknown]
  - Retinal haemorrhage [Recovering/Resolving]
  - Haematocrit decreased [Unknown]
  - Lymphocyte count decreased [Unknown]
